FAERS Safety Report 20313934 (Version 1)
Quarter: 2022Q1

REPORT INFORMATION
  Report Type: Spontaneous
  Country: US (occurrence: US)
  Receive Date: 20220109
  Receipt Date: 20220109
  Transmission Date: 20220423
  Serious: No
  Sender: FDA-Public Use
  Company Number: US-SA-SAC20211231000828

PATIENT
  Sex: Female

DRUGS (24)
  1. DUPIXENT [Suspect]
     Active Substance: DUPILUMAB
     Dosage: 300 MG, QOW
     Route: 058
  2. ALEVE [Concomitant]
     Active Substance: NAPROXEN SODIUM
  3. CLOTRIMAZOLE [Concomitant]
     Active Substance: CLOTRIMAZOLE
  4. GAS RELIEF [Concomitant]
     Active Substance: DIMETHICONE
  5. LEVOCETIRIZINE DIHYDROCHLORIDE [Concomitant]
     Active Substance: LEVOCETIRIZINE DIHYDROCHLORIDE
  6. PRILOSEC [Concomitant]
     Active Substance: OMEPRAZOLE MAGNESIUM
  7. SUCRALFATE [Concomitant]
     Active Substance: SUCRALFATE
  8. ESCITALOPRAM OXALATE [Concomitant]
     Active Substance: ESCITALOPRAM OXALATE
  9. METHYLPREDNISOLONE [Concomitant]
     Active Substance: METHYLPREDNISOLONE
  10. AZITHROMYCIN [Concomitant]
     Active Substance: AZITHROMYCIN
  11. AMOXICILLIN\CLAVULANIC ACID [Concomitant]
     Active Substance: AMOXICILLIN\CLAVULANIC ACID
     Indication: Sinusitis
  12. FLUCONAZOLE [Concomitant]
     Active Substance: FLUCONAZOLE
  13. DOXYCYCLINE [Concomitant]
     Active Substance: DOXYCYCLINE
  14. SYNTHROID [Concomitant]
     Active Substance: LEVOTHYROXINE SODIUM
  15. QVAR [Concomitant]
     Active Substance: BECLOMETHASONE DIPROPIONATE
  16. PANTOPRAZOLE SODIUM [Concomitant]
     Active Substance: PANTOPRAZOLE SODIUM
  17. MONTELUKAST SODIUM [Concomitant]
     Active Substance: MONTELUKAST SODIUM
  18. ISRADIPINE [Concomitant]
     Active Substance: ISRADIPINE
  19. EPINEPHRINE [Concomitant]
     Active Substance: EPINEPHRINE
  20. FLUTICASONE PROPIONATE [Concomitant]
     Active Substance: FLUTICASONE PROPIONATE
  21. AZELASTINE HYDROCHLORIDE [Concomitant]
     Active Substance: AZELASTINE HYDROCHLORIDE
  22. CITRACAL + D3 [Concomitant]
  23. DAILY-VITE [Concomitant]
  24. MUCUS RELIEF [Concomitant]
     Active Substance: GUAIFENESIN

REACTIONS (3)
  - Sinusitis [Unknown]
  - Injection site reaction [Unknown]
  - Therapeutic response decreased [Unknown]
